FAERS Safety Report 24542751 (Version 1)
Quarter: 2024Q4

REPORT INFORMATION
  Report Type: Spontaneous
  Country: US (occurrence: US)
  Receive Date: 20241024
  Receipt Date: 20241024
  Transmission Date: 20250115
  Serious: No
  Sender: GLENMARK
  Company Number: US-GLENMARK PHARMACEUTICALS-2024GMK094126

PATIENT

DRUGS (5)
  1. RYALTRIS [Suspect]
     Active Substance: MOMETASONE FUROATE MONOHYDRATE\OLOPATADINE HYDROCHLORIDE
     Indication: Nasal congestion
     Dosage: 2 DOSAGE FORM, BID (TWO SPRAYS IN EACH NOSTRIL TWICE A DAY IN THE MORNING AND AT NIGHT, AS NEEDED)
     Route: 045
     Dates: start: 2024
  2. RYALTRIS [Suspect]
     Active Substance: MOMETASONE FUROATE MONOHYDRATE\OLOPATADINE HYDROCHLORIDE
     Indication: Allergy to plants
  3. RYALTRIS [Suspect]
     Active Substance: MOMETASONE FUROATE MONOHYDRATE\OLOPATADINE HYDROCHLORIDE
     Indication: Seasonal allergy
  4. ALLEGRA [Concomitant]
     Active Substance: FEXOFENADINE HYDROCHLORIDE
     Indication: Allergy to plants
     Dosage: UNK
     Route: 048
  5. ALLEGRA [Concomitant]
     Active Substance: FEXOFENADINE HYDROCHLORIDE
     Indication: Seasonal allergy

REACTIONS (4)
  - Product use in unapproved indication [Unknown]
  - Drug dose omission by device [Unknown]
  - Wrong technique in product usage process [Unknown]
  - Device delivery system issue [Unknown]
